FAERS Safety Report 20625204 (Version 1)
Quarter: 2022Q1

REPORT INFORMATION
  Report Type: Spontaneous
  Country: US (occurrence: US)
  Receive Date: 20220323
  Receipt Date: 20220323
  Transmission Date: 20220423
  Serious: No
  Sender: FDA-Public Use
  Company Number: US-STRIDES ARCOLAB LIMITED-2022SP002159

PATIENT
  Sex: Female
  Weight: 80.272 kg

DRUGS (13)
  1. GABAPENTIN [Suspect]
     Active Substance: GABAPENTIN
     Indication: Neuralgia
     Dosage: 100 MILLIGRAM, PRN (DAILY PRN)
     Route: 065
     Dates: end: 20220128
  2. AZATHIOPRINE [Suspect]
     Active Substance: AZATHIOPRINE
     Indication: Renal transplant
     Dosage: 100 MILLIGRAM, DAILY
     Route: 065
     Dates: start: 20220131
  3. TACROLIMUS [Suspect]
     Active Substance: TACROLIMUS
     Indication: Renal transplant
     Dosage: 6 MILLIGRAM, BID
     Route: 065
     Dates: start: 20210702
  4. PREDNISOLONE [Suspect]
     Active Substance: PREDNISOLONE
     Indication: Renal transplant
     Dosage: 5 MILLIGRAM, DAILY
     Route: 065
     Dates: start: 20210702
  5. ROSUVASTATIN [Suspect]
     Active Substance: ROSUVASTATIN
     Indication: Blood cholesterol
     Dosage: 10 MILLIGRAM, DAILY
     Route: 065
     Dates: start: 202107, end: 20220128
  6. MYFORTIC [Suspect]
     Active Substance: MYCOPHENOLATE SODIUM
     Indication: Renal transplant
     Dosage: 720 MILLIGRAM, BID (PO)
     Route: 048
     Dates: start: 20210702, end: 20220128
  7. PANTOPRAZOLE [Suspect]
     Active Substance: PANTOPRAZOLE
     Indication: Prophylaxis
     Dosage: 40 MILLIGRAM, DAILY
     Route: 065
     Dates: start: 20210702, end: 20220128
  8. KEFLEX [Suspect]
     Active Substance: CEPHALEXIN
     Indication: Urinary tract infection
     Dosage: 250 MILLIGRAM, EVERY 6 HRS
     Route: 065
     Dates: start: 20220215, end: 20220222
  9. APIXABAN [Suspect]
     Active Substance: APIXABAN
     Indication: Deep vein thrombosis
     Dosage: 5 MILLIGRAM, BID
     Route: 065
  10. ATOVAQUONE [Suspect]
     Active Substance: ATOVAQUONE
     Indication: Antifungal prophylaxis
     Dosage: 1500 MILLIGRAM, DAILY
     Route: 065
     Dates: start: 20210702
  11. VITAMIN D NOS [Suspect]
     Active Substance: VITAMIN D NOS
     Indication: Supplementation therapy
     Dosage: 1250 MCG, ONCE A WEEK
     Route: 065
     Dates: start: 20211110
  12. MAGNESIUM [Suspect]
     Active Substance: MAGNESIUM
     Indication: Supplementation therapy
     Dosage: 420 MILLIGRAM, DAILY
     Route: 065
     Dates: start: 20210702
  13. NIFEDIPINE [Suspect]
     Active Substance: NIFEDIPINE
     Indication: Blood pressure measurement
     Dosage: 60 MILLIGRAM, BID
     Route: 065
     Dates: start: 20210702

REACTIONS (1)
  - Maternal exposure during pregnancy [Unknown]
